FAERS Safety Report 9786277 (Version 1)
Quarter: 2013Q4

REPORT INFORMATION
  Report Type: Spontaneous
  Country: GB (occurrence: None)
  Receive Date: 20131224
  Receipt Date: 20131224
  Transmission Date: 20140711
  Serious: Yes (Other)
  Sender: FDA-Public Use
  Company Number: ABR_01360_2013

PATIENT
  Age: 57 Year
  Sex: Male

DRUGS (1)
  1. CARMUSTINE [Suspect]
     Indication: GLIOMA
     Dosage: 5 DF, [5 WAFERS]

REACTIONS (1)
  - Subdural haematoma [None]
